FAERS Safety Report 15896971 (Version 2)
Quarter: 2019Q1

REPORT INFORMATION
  Report Type: Report from Study
  Country: SK (occurrence: SK)
  Receive Date: 20190131
  Receipt Date: 20190208
  Transmission Date: 20190417
  Serious: Yes (Death)
  Sender: FDA-Public Use
  Company Number: SK-PFIZER INC-2019043006

PATIENT
  Sex: Male

DRUGS (2)
  1. DOCETAXEL. [Suspect]
     Active Substance: DOCETAXEL
     Indication: PROSTATE CANCER
     Dosage: 75 MG/M2, CYCLIC (6 CYCLES) + PREDNISONE + ADT (ANDROGEN SUPPRESSION THERAPY)
  2. PREDNISONE. [Suspect]
     Active Substance: PREDNISONE
     Indication: PROSTATE CANCER
     Dosage: 10 MG, DAILY (DAILY) + DOCETAXEL + ADT (ANDROGEN SUPPRESSION THERAPY)

REACTIONS (1)
  - Death [Fatal]
